FAERS Safety Report 5659507-1 (Version None)
Quarter: 2008Q1

REPORT INFORMATION
  Report Type: 
  Country: None (occurrence: None)
  Receive Date: 20080311
  Receipt Date: 20080306
  Transmission Date: 20080703
  Serious: Yes (Death)
  Sender: FDA-Public Use
  Company Number: PHHY2008BR01929

PATIENT
  Age: 61 Year
  Sex: Male

DRUGS (2)
  1. DIOVAN HCT [Suspect]
     Dosage: 1
     Route: 048
  2. SELOPRES ZOK [Concomitant]
     Indication: ARRHYTHMIA
     Dates: start: 20070301

REACTIONS (2)
  - CARDIAC ARREST [None]
  - MEDICATION ERROR [None]
